FAERS Safety Report 16717037 (Version 1)
Quarter: 2019Q3

REPORT INFORMATION
  Report Type: Spontaneous
  Country: CA (occurrence: CA)
  Receive Date: 20190819
  Receipt Date: 20190819
  Transmission Date: 20191005
  Serious: Yes (Death, Other)
  Sender: FDA-Public Use
  Company Number: CA-PFIZER INC-2016523567

PATIENT
  Age: 51 Year
  Sex: Female

DRUGS (1)
  1. IBRANCE [Suspect]
     Active Substance: PALBOCICLIB
     Dosage: 125 MG, CYCLIC (21 DAYS ON 7 DAYS OFF)
     Dates: start: 20161208

REACTIONS (5)
  - Anxiety [Not Recovered/Not Resolved]
  - Off label use [Unknown]
  - Death [Fatal]
  - Depression [Not Recovered/Not Resolved]
  - Product use in unapproved indication [Unknown]
